FAERS Safety Report 7676788-3 (Version None)
Quarter: 2011Q3

REPORT INFORMATION
  Report Type: 
  Country: None (occurrence: None)
  Receive Date: 20110805
  Receipt Date: 20110726
  Transmission Date: 20111222
  Serious: Yes (Hospitalization)
  Sender: FDA-Public Use
  Company Number: DEP_00505_2011

PATIENT

DRUGS (3)
  1. VERAPAMIL [Concomitant]
  2. METFORMIN HCL [Suspect]
     Indication: DIABETES MELLITUS
     Dosage: (850 MG QD)
  3. ACETYLSALICYLIC ACID SRT [Concomitant]

REACTIONS (15)
  - LEUKOCYTOSIS [None]
  - METABOLIC ACIDOSIS [None]
  - HEPATOTOXICITY [None]
  - NAUSEA [None]
  - BILIRUBIN CONJUGATED INCREASED [None]
  - BLOOD GLUCOSE INCREASED [None]
  - PROTEIN URINE PRESENT [None]
  - ASTHENIA [None]
  - ASPARTATE AMINOTRANSFERASE INCREASED [None]
  - PYREXIA [None]
  - VOMITING [None]
  - BLOOD BILIRUBIN INCREASED [None]
  - HYPERKALAEMIA [None]
  - EXERCISE TOLERANCE DECREASED [None]
  - ALANINE AMINOTRANSFERASE INCREASED [None]
